FAERS Safety Report 4599058-9 (Version None)
Quarter: 2005Q1

REPORT INFORMATION
  Report Type: 
  Country: None (occurrence: None)
  Receive Date: 20050304
  Receipt Date: 20050224
  Transmission Date: 20050727
  Serious: Yes (Death)
  Sender: FDA-Public Use
  Company Number: NO-MERCK-0503NOR00003

PATIENT
  Age: 68 Year
  Sex: Female

DRUGS (5)
  1. VIOXX [Suspect]
     Indication: SYSTEMIC LUPUS ERYTHEMATOSUS
     Route: 048
     Dates: start: 20021213
  2. AZATHIOPRINE [Concomitant]
     Indication: SYSTEMIC LUPUS ERYTHEMATOSUS
     Route: 065
     Dates: start: 19950101
  3. ACETAMINOPHEN [Concomitant]
     Indication: SYSTEMIC LUPUS ERYTHEMATOSUS
     Route: 065
     Dates: start: 20021213
  4. ZOPICLONE [Concomitant]
     Indication: SLEEP DISORDER
     Route: 065
     Dates: start: 20020909
  5. PREDNISOLONE [Concomitant]
     Indication: SYSTEMIC LUPUS ERYTHEMATOSUS
     Route: 065
     Dates: start: 19950101

REACTIONS (2)
  - DEATH [None]
  - SUDDEN DEATH [None]
